FAERS Safety Report 4614233-2 (Version None)
Quarter: 2005Q1

REPORT INFORMATION
  Report Type: 
  Country: None (occurrence: None)
  Receive Date: 20050321
  Receipt Date: 20050311
  Transmission Date: 20050727
  Serious: Yes (Hospitalization)
  Sender: FDA-Public Use
  Company Number: FR-ABBOTT-05P-056-0293865-00

PATIENT
  Age: 79 Year
  Sex: Female

DRUGS (2)
  1. DEPAKENE [Suspect]
     Indication: EPILEPSY
     Route: 048
     Dates: start: 20050101, end: 20050226
  2. DEPAKENE [Suspect]
     Dates: end: 20040901

REACTIONS (5)
  - DEHYDRATION [None]
  - HEPATIC NECROSIS [None]
  - HYPERNATRAEMIA [None]
  - RHABDOMYOLYSIS [None]
  - TRANSAMINASES INCREASED [None]
